FAERS Safety Report 9163285 (Version 1)
Quarter: 2013Q1

REPORT INFORMATION
  Report Type: Spontaneous
  Country: US (occurrence: None)
  Receive Date: 20130222
  Receipt Date: 20130222
  Transmission Date: 20140127
  Serious: Yes (Hospitalization)
  Sender: FDA-Public Use
  Company Number: INT_00211_2013

PATIENT
  Age: 54 Year
  Sex: Female

DRUGS (8)
  1. CEFTRIAXONE [Suspect]
     Indication: PRODUCT USED FOR UNKNOWN INDICATION
     Dosage: (NOT OTHERWISE SPECIFIED))
     Route: 042
  2. AZITHROMYCIN [Suspect]
     Dosage: (DF [INITIAL
     Route: 048
  3. TACROLIMUS [Concomitant]
     Dosage: IN THE MORNING, 5 MG IN THE EVENING)
     Route: 048
  4. ATORVASTATIN [Concomitant]
  5. PREDNISONE [Concomitant]
  6. LISINOPRIL [Concomitant]
  7. CONJUGATED ESTROGENS [Concomitant]
  8. SUMATRIPTAN [Concomitant]

REACTIONS (1)
  - Drug level increased [None]
